FAERS Safety Report 5159856-X (Version None)
Quarter: 2006Q4

REPORT INFORMATION
  Report Type: 
  Country: None (occurrence: None)
  Receive Date: 20061129
  Receipt Date: 20060227
  Transmission Date: 20070319
  Serious: No
  Sender: FDA-Public Use
  Company Number: US-GLAXOSMITHKLINE-A0595325A

PATIENT
  Age: 45 Year
  Sex: Female

DRUGS (2)
  1. WELLBUTRIN SR [Suspect]
     Dosage: 150MG PER DAY
     Route: 048
  2. ZYBAN [Suspect]
     Dosage: 150MG TWICE PER DAY
     Route: 048

REACTIONS (3)
  - HEADACHE [None]
  - INSOMNIA [None]
  - RESTLESS LEGS SYNDROME [None]
